FAERS Safety Report 9869342 (Version 1)
Quarter: 2014Q1

REPORT INFORMATION
  Report Type: Spontaneous
  Country: US (occurrence: US)
  Receive Date: 20140205
  Receipt Date: 20140205
  Transmission Date: 20141002
  Serious: Yes (Life-Threatening, Hospitalization)
  Sender: FDA-Public Use
  Company Number: US-JNJFOC-20140200932

PATIENT
  Age: 49 Year
  Sex: Female
  Weight: 77.11 kg

DRUGS (11)
  1. REMICADE [Suspect]
     Indication: CROHN^S DISEASE
     Route: 042
     Dates: start: 201304
  2. REMICADE [Suspect]
     Indication: CROHN^S DISEASE
     Route: 042
     Dates: start: 201303
  3. WELLBUTRIN [Concomitant]
     Indication: DEPRESSION
     Route: 065
  4. LEXAPRO [Concomitant]
     Indication: DEPRESSION
     Route: 065
  5. TRAZODONE [Concomitant]
     Indication: DEPRESSION
     Route: 065
  6. TRAZODONE [Concomitant]
     Indication: INSOMNIA
     Route: 065
  7. NARATRIPTAN [Concomitant]
     Indication: MIGRAINE
     Route: 065
  8. TOPAMAX [Concomitant]
     Indication: MIGRAINE
     Route: 065
  9. PROAIR (SALBUTAMOL SULFATE) [Concomitant]
     Indication: ASTHMA
     Route: 065
  10. CORTISONE [Concomitant]
     Indication: BURSITIS
     Dosage: INTO HIPS
     Route: 065
  11. BUSPAR [Concomitant]
     Indication: ANXIETY
     Route: 065

REACTIONS (4)
  - Respiratory arrest [Recovered/Resolved]
  - Swelling face [Recovered/Resolved]
  - Anaphylactic reaction [Recovered/Resolved]
  - Infusion related reaction [Recovered/Resolved]
